FAERS Safety Report 25723105 (Version 1)
Quarter: 2025Q3

REPORT INFORMATION
  Report Type: Spontaneous
  Country: CN (occurrence: CN)
  Receive Date: 20250825
  Receipt Date: 20250825
  Transmission Date: 20251021
  Serious: Yes (Disabling, Other)
  Sender: PFIZER
  Company Number: CN-PFIZER INC-PV202500101677

PATIENT
  Age: 51 Year
  Sex: Male
  Weight: 82 kg

DRUGS (1)
  1. METHOTREXATE SODIUM [Suspect]
     Active Substance: METHOTREXATE SODIUM
     Indication: Diffuse large B-cell lymphoma
     Dosage: 3 G, 1X/DAY
     Route: 042
     Dates: start: 20250812, end: 20250812

REACTIONS (3)
  - Renal impairment [Recovering/Resolving]
  - Myelosuppression [Recovering/Resolving]
  - Drug clearance decreased [Unknown]

NARRATIVE: CASE EVENT DATE: 20250801
